FAERS Safety Report 11711421 (Version 1)
Quarter: 2015Q4

REPORT INFORMATION
  Report Type: Spontaneous
  Country: US (occurrence: US)
  Receive Date: 20151104
  Receipt Date: 20151104
  Transmission Date: 20160304
  Serious: No
  Sender: FDA-Public Use
  Company Number: US-ELI_LILLY_AND_COMPANY-US201012001193

PATIENT
  Sex: Female

DRUGS (2)
  1. FORTEO [Suspect]
     Active Substance: TERIPARATIDE
     Dosage: 20 UG, DAILY (1/D)
  2. FORTEO [Suspect]
     Active Substance: TERIPARATIDE
     Indication: OSTEOPOROSIS
     Dosage: 20 UG, DAILY (1/D)
     Dates: start: 2008

REACTIONS (19)
  - Pain in extremity [Unknown]
  - Burning sensation [Unknown]
  - Vertigo [Unknown]
  - Rash generalised [Unknown]
  - Peripheral swelling [Not Recovered/Not Resolved]
  - Dizziness [Unknown]
  - Flank pain [Unknown]
  - Neck pain [Unknown]
  - Rash [Unknown]
  - Hypersensitivity [Unknown]
  - Lipoma [Unknown]
  - Headache [Unknown]
  - Erythema [Unknown]
  - Discomfort [Unknown]
  - Anxiety [Unknown]
  - Liver function test abnormal [Unknown]
  - Pain in extremity [Recovered/Resolved]
  - Pain [Unknown]
  - Constipation [Unknown]

NARRATIVE: CASE EVENT DATE: 2008
